FAERS Safety Report 6591074-0 (Version None)
Quarter: 2010Q1

REPORT INFORMATION
  Report Type: 
  Country: None (occurrence: None)
  Receive Date: 20100219
  Receipt Date: 20100209
  Transmission Date: 20100710
  Serious: Yes (Life-Threatening)
  Sender: FDA-Public Use
  Company Number: US-BAYER-201015826GPV

PATIENT
  Age: 65 Year
  Sex: Female

DRUGS (2)
  1. CIPROFLOXACIN [Suspect]
     Indication: URINARY TRACT INFECTION
     Dosage: ONE DOSE
     Route: 048
  2. GLIPIZIDE [Interacting]
     Indication: TYPE 2 DIABETES MELLITUS

REACTIONS (3)
  - CONVULSION [None]
  - HYPERINSULINAEMIA [None]
  - HYPOGLYCAEMIA [None]
